FAERS Safety Report 15920426 (Version 1)
Quarter: 2019Q1

REPORT INFORMATION
  Report Type: Spontaneous
  Country: JP (occurrence: JP)
  Receive Date: 20190205
  Receipt Date: 20190205
  Transmission Date: 20190417
  Serious: Yes (Hospitalization)
  Sender: FDA-Public Use
  Company Number: JP-BAYER-2019-013874

PATIENT
  Age: 78 Year
  Sex: Female

DRUGS (8)
  1. EQUA [Concomitant]
     Active Substance: VILDAGLIPTIN
  2. METFORMIN HYDROCHLORIDE. [Concomitant]
     Active Substance: METFORMIN HYDROCHLORIDE
  3. LOTRIGA [Concomitant]
     Active Substance: OMEGA-3-ACID ETHYL ESTERS
  4. BAYASPIRIN 100 MG [Suspect]
     Active Substance: ASPIRIN
     Dosage: 100 MG, QD
     Route: 048
     Dates: start: 20151220
  5. NIFEDIPINE. [Concomitant]
     Active Substance: NIFEDIPINE
  6. AZELNIDIPINE [Concomitant]
     Active Substance: AZELNIDIPINE
  7. PITAVASTATIN CALCIUM [Concomitant]
     Active Substance: PITAVASTATIN CALCIUM
  8. SENNOSIDE A+B [Concomitant]
     Active Substance: SENNOSIDES A AND B

REACTIONS (4)
  - Intentional product use issue [None]
  - Constipation [Recovered/Resolved with Sequelae]
  - Intestinal obstruction [Recovering/Resolving]
  - Inappropriate schedule of product administration [None]

NARRATIVE: CASE EVENT DATE: 20190104
